FAERS Safety Report 5975785-3 (Version None)
Quarter: 2008Q4

REPORT INFORMATION
  Report Type: 
  Country: None (occurrence: None)
  Receive Date: 20081202
  Receipt Date: 20080210
  Transmission Date: 20090506
  Serious: No
  Sender: FDA-Public Use
  Company Number: US-AMGEN-KDL264861

PATIENT
  Sex: Female

DRUGS (2)
  1. ENBREL [Suspect]
     Indication: RHEUMATOID ARTHRITIS
     Dates: start: 20070114
  2. METHOTREXATE [Concomitant]

REACTIONS (6)
  - ASTHENIA [None]
  - COUGH [None]
  - DIZZINESS [None]
  - DYSKINESIA [None]
  - MALAISE [None]
  - OROPHARYNGEAL PAIN [None]
